FAERS Safety Report 7798893-3 (Version None)
Quarter: 2011Q4

REPORT INFORMATION
  Report Type: 
  Country: None (occurrence: None)
  Receive Date: 20111006
  Receipt Date: 20110927
  Transmission Date: 20120403
  Serious: Yes (Other)
  Sender: FDA-Public Use
  Company Number: US-JNJFOC-20111000059

PATIENT
  Sex: Female

DRUGS (2)
  1. TOPAMAX [Suspect]
     Indication: HEADACHE
     Route: 048
  2. ALL OTHER THERAPEUTIC AGENTS [Interacting]
     Indication: OESTROGEN REPLACEMENT THERAPY
     Route: 065

REACTIONS (2)
  - CYSTITIS [None]
  - DRUG INTERACTION [None]
